FAERS Safety Report 5383810-6 (Version None)
Quarter: 2007Q3

REPORT INFORMATION
  Report Type: 
  Country: None (occurrence: None)
  Receive Date: 20070702
  Receipt Date: 20070430
  Transmission Date: 20080115
  Serious: No
  Sender: FDA-Public Use
  Company Number: 2007PV032875

PATIENT
  Age: 57 Year
  Sex: Female

DRUGS (6)
  1. SYMLIN [Suspect]
     Indication: TYPE 2 DIABETES MELLITUS
     Dosage: 90 MCG; TID; SC : 120 MCG; QAM; SC : 180 MCG; QD; SC : 240 MCG; QPM ; SC
     Route: 058
     Dates: start: 20070201, end: 20070201
  2. SYMLIN [Suspect]
     Indication: TYPE 2 DIABETES MELLITUS
     Dosage: 90 MCG; TID; SC : 120 MCG; QAM; SC : 180 MCG; QD; SC : 240 MCG; QPM ; SC
     Route: 058
     Dates: start: 20070201, end: 20070201
  3. SYMLIN [Suspect]
     Indication: TYPE 2 DIABETES MELLITUS
     Dosage: 90 MCG; TID; SC : 120 MCG; QAM; SC : 180 MCG; QD; SC : 240 MCG; QPM ; SC
     Route: 058
     Dates: start: 20070201, end: 20070201
  4. SYMLIN [Suspect]
     Indication: TYPE 2 DIABETES MELLITUS
     Dosage: 90 MCG; TID; SC : 120 MCG; QAM; SC : 180 MCG; QD; SC : 240 MCG; QPM ; SC
     Route: 058
     Dates: start: 20070401
  5. AVANDAMET [Concomitant]
  6. NOVOLOG MIX 70/30 [Concomitant]

REACTIONS (3)
  - BLOOD GLUCOSE INCREASED [None]
  - DRUG DISPENSING ERROR [None]
  - INJECTION SITE PAIN [None]
